FAERS Safety Report 7087934-7 (Version None)
Quarter: 2010Q4

REPORT INFORMATION
  Report Type: 
  Country: None (occurrence: None)
  Receive Date: 20101108
  Receipt Date: 20101026
  Transmission Date: 20110411
  Serious: Yes (Hospitalization, Other)
  Sender: FDA-Public Use
  Company Number: US-US-EMD SERONO, INC.-231425J10USA

PATIENT
  Sex: Male
  Weight: 68 kg

DRUGS (7)
  1. REBIF [Suspect]
     Indication: MULTIPLE SCLEROSIS
     Route: 058
     Dates: start: 20091023
  2. BACLOFEN [Concomitant]
     Indication: MULTIPLE SCLEROSIS
     Route: 065
  3. COREG [Concomitant]
     Indication: PROPHYLAXIS
     Route: 065
  4. TOPAMAX [Concomitant]
     Indication: MULTIPLE SCLEROSIS
     Route: 065
  5. PRAVASTATIN [Concomitant]
     Indication: BLOOD CHOLESTEROL INCREASED
     Route: 065
  6. WELLBUTRIN [Concomitant]
     Route: 065
  7. NYSTATIN [Concomitant]
     Indication: BLOOD CHOLESTEROL INCREASED
     Route: 065

REACTIONS (11)
  - BRONCHITIS [None]
  - CHROMATURIA [None]
  - CONSTIPATION [None]
  - DEPRESSION [None]
  - DYSPNOEA [None]
  - MULTIPLE SCLEROSIS [None]
  - NAUSEA [None]
  - RECTAL HAEMORRHAGE [None]
  - SELF-INJURIOUS IDEATION [None]
  - TYPE 1 DIABETES MELLITUS [None]
  - VOMITING [None]
